FAERS Safety Report 5990102-0 (Version None)
Quarter: 2008Q4

REPORT INFORMATION
  Report Type: 
  Country: None (occurrence: None)
  Receive Date: 20081211
  Receipt Date: 20081205
  Transmission Date: 20090506
  Serious: Yes (Other)
  Sender: FDA-Public Use
  Company Number: US-JNJFOC-20081202150

PATIENT
  Sex: Male
  Weight: 54.43 kg

DRUGS (4)
  1. CONCERTA [Suspect]
     Indication: ATTENTION DEFICIT/HYPERACTIVITY DISORDER
     Route: 048
  2. RISPERIDONE [Suspect]
     Indication: BIPOLAR DISORDER
     Route: 048
  3. DEPAKOTE [Suspect]
     Route: 048
  4. DEPAKOTE [Suspect]
     Indication: ATTENTION DEFICIT/HYPERACTIVITY DISORDER
     Route: 048

REACTIONS (7)
  - ANTICONVULSANT DRUG LEVEL INCREASED [None]
  - AORTIC DILATATION [None]
  - BIPOLAR DISORDER [None]
  - CARDIAC MURMUR [None]
  - HEART VALVE CALCIFICATION [None]
  - HYPOAESTHESIA [None]
  - MENTAL STATUS CHANGES [None]
